FAERS Safety Report 19010413 (Version 3)
Quarter: 2021Q2

REPORT INFORMATION
  Report Type: Report from Study
  Country: US (occurrence: US)
  Receive Date: 20210315
  Receipt Date: 20210604
  Transmission Date: 20210717
  Serious: Yes (Other)
  Sender: FDA-Public Use
  Company Number: NVSC2021US044458

PATIENT
  Sex: Female

DRUGS (1)
  1. KESIMPTA [Suspect]
     Active Substance: OFATUMUMAB
     Indication: PRODUCT USED FOR UNKNOWN INDICATION
     Dosage: 20 MG, QMO
     Route: 058
     Dates: start: 20210217

REACTIONS (4)
  - Ligament rupture [Unknown]
  - Aphasia [Unknown]
  - Multiple sclerosis [Unknown]
  - Fall [Unknown]
